FAERS Safety Report 21769436 (Version 1)
Quarter: 2022Q4

REPORT INFORMATION
  Report Type: Spontaneous
  Country: CA (occurrence: None)
  Receive Date: 20221223
  Receipt Date: 20221223
  Transmission Date: 20230113
  Serious: Yes (Hospitalization)
  Sender: FDA-Public Use
  Company Number: CA-ROCHE-3247149

PATIENT
  Age: 58 Year
  Sex: Male

DRUGS (4)
  1. RITUXIMAB [Suspect]
     Active Substance: RITUXIMAB
     Indication: Follicular lymphoma
     Route: 065
  2. BAMLANIVIMAB [Concomitant]
     Active Substance: BAMLANIVIMAB
  3. BENDAMUSTINE HYDROCHLORIDE [Concomitant]
     Active Substance: BENDAMUSTINE HYDROCHLORIDE
  4. ELASOMERAN [Concomitant]
     Active Substance: ELASOMERAN
     Route: 065

REACTIONS (4)
  - COVID-19 [Unknown]
  - COVID-19 pneumonia [Unknown]
  - Hypogammaglobulinaemia [Unknown]
  - Respiratory failure [Unknown]
